FAERS Safety Report 5213667-5 (Version None)
Quarter: 2007Q1

REPORT INFORMATION
  Report Type: 
  Country: None (occurrence: None)
  Receive Date: 20070119
  Receipt Date: 20070112
  Transmission Date: 20070707
  Serious: Yes (Hospitalization)
  Sender: FDA-Public Use
  Company Number: US-MERCK-0701USA01881

PATIENT
  Age: 61 Year
  Sex: Female

DRUGS (2)
  1. FOSAMAX [Suspect]
     Indication: OSTEOPENIA
     Route: 048
     Dates: start: 20030101, end: 20030101
  2. MAXZIDE [Concomitant]
     Route: 065

REACTIONS (2)
  - CHEST PAIN [None]
  - DYSPHAGIA [None]
